FAERS Safety Report 9301595 (Version 2)
Quarter: 2013Q2

REPORT INFORMATION
  Report Type: Spontaneous
  Country: FI (occurrence: FI)
  Receive Date: 20130521
  Receipt Date: 20130524
  Transmission Date: 20140414
  Serious: Yes (Other)
  Sender: FDA-Public Use
  Company Number: FI-AMGEN-FINSP2013033082

PATIENT
  Age: 80 Year
  Sex: Male

DRUGS (11)
  1. XGEVA [Suspect]
     Indication: METASTASES TO BONE
     Dosage: UNK
     Dates: start: 20130219
  2. CALCICHEW D3 FORTE [Concomitant]
  3. DOXAL                              /00011502/ [Concomitant]
     Dosage: 50 MG, UNK
  4. NORVASC [Concomitant]
     Dosage: 5 MG, UNK
  5. PREDNISOLONE [Concomitant]
     Dosage: 20 MG, UNK
  6. SIMVASTATIN [Concomitant]
  7. SOMAC [Concomitant]
     Dosage: 40 MG, UNK
  8. FIRMAGON                           /01764801/ [Concomitant]
  9. LORAZEPAM ORIFARM [Concomitant]
  10. PARA-TABS [Concomitant]
  11. HORMONES [Concomitant]

REACTIONS (7)
  - Osteosclerosis [Unknown]
  - Oral pain [Unknown]
  - Pain in jaw [Recovered/Resolved]
  - Hypoaesthesia [Unknown]
  - Paresis [Unknown]
  - Lip ulceration [Unknown]
  - Mastication disorder [Unknown]
